FAERS Safety Report 7531899-8 (Version None)
Quarter: 2011Q2

REPORT INFORMATION
  Report Type: 
  Country: None (occurrence: None)
  Receive Date: 20110601
  Receipt Date: 20110520
  Transmission Date: 20111010
  Serious: Yes (Disabling, Other)
  Sender: FDA-Public Use
  Company Number: 2011BN000046

PATIENT
  Age: 2 Year

DRUGS (5)
  1. ETOPOSIDE [Concomitant]
  2. CARBOPLATIN [Concomitant]
  3. MELPHALAN HYDROCHLORIDE [Suspect]
     Indication: RETINOBLASTOMA BILATERAL
     Dosage: 5 MG; IART; 7.5 MG; IART
     Route: 013
  4. HEPARIN [Concomitant]
  5. VINCRISTINE [Concomitant]

REACTIONS (1)
  - VITREOUS HAEMORRHAGE [None]
